FAERS Safety Report 9684401 (Version 1)
Quarter: 2013Q4

REPORT INFORMATION
  Report Type: Spontaneous
  Country: DE (occurrence: DE)
  Receive Date: 20131112
  Receipt Date: 20131112
  Transmission Date: 20140711
  Serious: Yes (Other)
  Sender: FDA-Public Use
  Company Number: DE-ASTRAZENECA-2013SE82289

PATIENT
  Age: 47 Year
  Sex: Female

DRUGS (9)
  1. SEROQUEL PROLONG [Suspect]
     Route: 048
     Dates: start: 20130612, end: 20130626
  2. SEROQUEL PROLONG [Interacting]
     Route: 048
     Dates: start: 20130627, end: 20130813
  3. SEROQUEL PROLONG [Interacting]
     Dosage: 400 - 50 MG/DAY
     Route: 048
     Dates: start: 20130814, end: 20130827
  4. ERGENYL [Interacting]
     Route: 048
     Dates: start: 20130411, end: 20130725
  5. RISPERDAL [Suspect]
     Route: 048
     Dates: start: 20130313, end: 20130429
  6. RISPERDAL [Suspect]
     Route: 048
     Dates: start: 20130430, end: 20130716
  7. RISPERDAL [Suspect]
     Dosage: 7 - 1 MG/DAY
     Route: 048
     Dates: start: 20130717, end: 20130808
  8. DIAZEPAM [Concomitant]
     Dosage: 25 - 5 MG/DAY
     Route: 048
     Dates: start: 20130716, end: 20130806
  9. MIRTAZAPINE [Concomitant]
     Route: 048
     Dates: start: 20130710

REACTIONS (4)
  - Drug interaction [Unknown]
  - Amenorrhoea [Unknown]
  - Blood prolactin increased [Unknown]
  - Galactorrhoea [Recovered/Resolved]
